FAERS Safety Report 10156290 (Version 2)
Quarter: 2014Q2

REPORT INFORMATION
  Report Type: Spontaneous
  Country: US (occurrence: US)
  Receive Date: 20140507
  Receipt Date: 20140520
  Transmission Date: 20141212
  Serious: No
  Sender: FDA-Public Use
  Company Number: US-BIOGENIDEC-2014BI040860

PATIENT
  Sex: Female

DRUGS (1)
  1. TYSABRI [Suspect]
     Indication: MULTIPLE SCLEROSIS
     Route: 042
     Dates: start: 20121105, end: 20140402

REACTIONS (4)
  - Tremor [Not Recovered/Not Resolved]
  - General symptom [Not Recovered/Not Resolved]
  - Muscular weakness [Not Recovered/Not Resolved]
  - Coordination abnormal [Not Recovered/Not Resolved]
